FAERS Safety Report 7653074-9 (Version None)
Quarter: 2011Q3

REPORT INFORMATION
  Report Type: 
  Country: None (occurrence: None)
  Receive Date: 20110722
  Receipt Date: 20100604
  Transmission Date: 20111222
  Serious: Yes (Hospitalization)
  Sender: FDA-Public Use
  Company Number: UTC-001142

PATIENT
  Age: 21 Year
  Sex: Male

DRUGS (1)
  1. REMODULIN [Suspect]
     Dosage: 56.16 UG/KG (0.039 UG/KG, 1 IN 1 MIN), INTRAVENOUS
     Route: 042

REACTIONS (1)
  - DEVICE RELATED INFECTION [None]
